FAERS Safety Report 9370622 (Version 1)
Quarter: 2013Q2

REPORT INFORMATION
  Report Type: Spontaneous
  Country: SI (occurrence: SI)
  Receive Date: 20130626
  Receipt Date: 20130626
  Transmission Date: 20140414
  Serious: Yes (Disabling)
  Sender: FDA-Public Use
  Company Number: SI-BAXTER-2013BAX023188

PATIENT
  Age: 8 Year
  Sex: Female

DRUGS (4)
  1. ENDOXAN 1G PRAEK ZA RAZTOPINO ZA INFUNDIRANJE [Suspect]
     Indication: NEPHROTIC SYNDROME
     Dosage: 70MG/DAY OR 2 MG/KG/DAY
     Route: 048
     Dates: start: 20130121, end: 20130401
  2. MEDROL [Concomitant]
     Indication: NEPHROTIC SYNDROME
     Dosage: 4 MG/2 DAYS
     Route: 065
     Dates: start: 201302
  3. ROCALTROL [Concomitant]
     Indication: PRODUCT USED FOR UNKNOWN INDICATION
     Dosage: 0.5 UG/DAY
     Route: 065
  4. CALCIUM CARBONATE [Concomitant]
     Indication: PRODUCT USED FOR UNKNOWN INDICATION
     Route: 065

REACTIONS (2)
  - Hepatic enzyme increased [Recovered/Resolved]
  - Neutropenia [Recovered/Resolved]
